FAERS Safety Report 21724799 (Version 2)
Quarter: 2024Q2

REPORT INFORMATION
  Report Type: Other
  Country: KW (occurrence: None)
  Receive Date: 20221214
  Receipt Date: 20240426
  Transmission Date: 20240716
  Serious: Yes (Hospitalization)
  Sender: FDA-Public Use
  Company Number: KW-ROCHE-3204262

PATIENT
  Age: 30 Year
  Sex: Female
  Weight: 57 kg

DRUGS (6)
  1. OCRELIZUMAB [Suspect]
     Active Substance: OCRELIZUMAB
     Indication: Relapsing-remitting multiple sclerosis
     Dosage: ON 10/MAR/2022, SHE RECEIVED THE MOST RECENT DOSE OF OCRELIZUMAB (600 MG) PRIOR TO SAE ONSET.
     Route: 042
     Dates: start: 20200211
  2. OCRELIZUMAB [Suspect]
     Active Substance: OCRELIZUMAB
     Route: 042
     Dates: start: 20210901, end: 20210901
  3. OCRELIZUMAB [Suspect]
     Active Substance: OCRELIZUMAB
     Route: 042
     Dates: start: 20210301, end: 20210301
  4. OCRELIZUMAB [Suspect]
     Active Substance: OCRELIZUMAB
     Route: 042
     Dates: start: 20200831, end: 20200831
  5. OCRELIZUMAB [Suspect]
     Active Substance: OCRELIZUMAB
     Route: 042
     Dates: start: 20200224, end: 20200224
  6. OCRELIZUMAB [Suspect]
     Active Substance: OCRELIZUMAB
     Route: 042
     Dates: start: 20220310, end: 20220310

REACTIONS (1)
  - Postoperative abscess [Recovered/Resolved]

NARRATIVE: CASE EVENT DATE: 20220929
